FAERS Safety Report 8440022-7 (Version None)
Quarter: 2012Q2

REPORT INFORMATION
  Report Type: 
  Country: None (occurrence: None)
  Receive Date: 20120608
  Receipt Date: 20120526
  Transmission Date: 20120825
  Serious: Yes (Hospitalization)
  Sender: FDA-Public Use
  Company Number: DSJ-2012-09525

PATIENT
  Age: 85 Year
  Sex: Male
  Weight: 62.9 kg

DRUGS (5)
  1. LANDEL (EFONIDIPINE HYDROCHLORIDE) (TABLET) (EFONIDIPINE HYDROCHLORIDE [Concomitant]
  2. TENORMIN [Suspect]
     Indication: HYPERTENSION
     Dosage: 50 MG (50 MG, 1 IN 1 D), PER ORAL
     Route: 048
     Dates: start: 20100624, end: 20111231
  3. OLMESARTAN MEDOXOMIL [Suspect]
     Indication: HYPERTENSION
     Dosage: 20 MG (20 MG, 1 IN 1 D), PER ORAL
     Route: 048
     Dates: start: 20100624, end: 20111231
  4. EPLERENONE [Suspect]
     Indication: HYPERTENSION
     Dosage: 50 MG (50 MG, 1 IN 1 D), PER ORAL
     Route: 048
     Dates: start: 20110924, end: 20111231
  5. LASIX [Concomitant]

REACTIONS (7)
  - SHOCK [None]
  - HAEMODIALYSIS [None]
  - SOMNOLENCE [None]
  - ATRIOVENTRICULAR BLOCK [None]
  - HYPERKALAEMIA [None]
  - SICK SINUS SYNDROME [None]
  - MALAISE [None]
